FAERS Safety Report 8439281-6 (Version None)
Quarter: 2012Q2

REPORT INFORMATION
  Report Type: 
  Country: None (occurrence: None)
  Receive Date: 20120615
  Receipt Date: 20120611
  Transmission Date: 20120825
  Serious: Yes (Hospitalization)
  Sender: FDA-Public Use
  Company Number: PHHO2010FR06188

PATIENT
  Sex: Male
  Weight: 81.5 kg

DRUGS (2)
  1. MYCOPHENOLIC ACID [Suspect]
     Indication: RENAL TRANSPLANT
     Dosage: 2150 MG, QD
     Route: 048
     Dates: start: 20100401
  2. NEORAL [Suspect]
     Indication: RENAL TRANSPLANT
     Dosage: 550 MG, QD
     Route: 048
     Dates: start: 20100401

REACTIONS (2)
  - PHLEBITIS [None]
  - PAIN IN EXTREMITY [None]
